FAERS Safety Report 17015498 (Version 1)
Quarter: 2019Q4

REPORT INFORMATION
  Report Type: Spontaneous
  Country: US (occurrence: US)
  Receive Date: 20191111
  Receipt Date: 20191111
  Transmission Date: 20200122
  Serious: No
  Sender: FDA-Public Use
  Company Number: US-ELI_LILLY_AND_COMPANY-US201910014232

PATIENT
  Age: 65 Year
  Sex: Male

DRUGS (3)
  1. BASAGLAR [Suspect]
     Active Substance: INSULIN GLARGINE
     Indication: TYPE 2 DIABETES MELLITUS
     Dosage: 52 U, UNKNOWN
     Route: 058
     Dates: start: 2018
  2. VICTOZA [Concomitant]
     Active Substance: LIRAGLUTIDE
     Indication: TYPE 2 DIABETES MELLITUS
     Dosage: 1.8 U, DAILY
  3. BASAGLAR [Suspect]
     Active Substance: INSULIN GLARGINE
     Dosage: 52 U, UNKNOWN
     Route: 058

REACTIONS (1)
  - Injection site pain [Unknown]
